FAERS Safety Report 8711500 (Version 2)
Quarter: 2012Q4

REPORT INFORMATION
  Report Type: Report from Study
  Country: BE (occurrence: BE)
  Receive Date: 20120807
  Receipt Date: 20120921
  Transmission Date: 20130627
  Serious: No
  Sender: FDA-Public Use
  Company Number: BE-PFIZER INC-2012188177

PATIENT
  Age: 35 Year
  Sex: Male
  Weight: 145 kg

DRUGS (7)
  1. GENOTROPIN [Suspect]
     Indication: GROWTH HORMONE DEFICIENCY
     Dosage: 0.5 mg, 7/WK
     Route: 058
     Dates: start: 20010926
  2. HUMEGON [Concomitant]
     Indication: LUTEINISING HORMONE DEFICIENCY
     Dosage: UNK
     Dates: start: 19990129
  3. HUMEGON [Concomitant]
     Indication: FOLLICLE-STIMULATING HORMONE DEFICIENCY
  4. PREGNYL [Concomitant]
     Indication: LUTEINISING HORMONE DEFICIENCY
     Dosage: UNK
     Dates: start: 19990129
  5. PREGNYL [Concomitant]
     Indication: FOLLICLE-STIMULATING HORMONE DEFICIENCY
  6. SEROXAT [Concomitant]
     Indication: DEPRESSION
     Dosage: UNK
     Dates: start: 20021028
  7. LEVOTHYROXINE [Concomitant]
     Indication: BLOOD THYROID STIMULATING HORMONE DECREASED
     Dosage: UNK
     Dates: start: 19820101

REACTIONS (1)
  - Obesity [Unknown]
